FAERS Safety Report 7395054-7 (Version None)
Quarter: 2011Q2

REPORT INFORMATION
  Report Type: 
  Country: None (occurrence: None)
  Receive Date: 20110405
  Receipt Date: 20110325
  Transmission Date: 20111010
  Serious: Yes (Hospitalization)
  Sender: FDA-Public Use
  Company Number: US-MERCK-1103USA02273

PATIENT
  Age: 71 Year
  Sex: Female

DRUGS (4)
  1. COZAAR [Suspect]
     Indication: HYPERTENSION
     Route: 048
  2. COZAAR [Suspect]
     Route: 048
     Dates: start: 19910301
  3. PREVACID [Concomitant]
     Route: 065
  4. COZAAR [Suspect]
     Route: 048

REACTIONS (9)
  - DRUG HYPERSENSITIVITY [None]
  - GENERAL SYMPTOM [None]
  - PALPITATIONS [None]
  - DYSPNOEA [None]
  - ADVERSE EVENT [None]
  - MALAISE [None]
  - GASTROINTESTINAL DISORDER [None]
  - FEELING ABNORMAL [None]
  - ASTHENIA [None]
